FAERS Safety Report 12271808 (Version 1)
Quarter: 2016Q2

REPORT INFORMATION
  Report Type: Spontaneous
  Country: US (occurrence: US)
  Receive Date: 20160415
  Receipt Date: 20160415
  Transmission Date: 20160815
  Serious: No
  Sender: FDA-Public Use
  Company Number: US-NOVOPROD-483094

PATIENT
  Age: 41 Year
  Sex: Female

DRUGS (3)
  1. SAXENDA [Suspect]
     Active Substance: LIRAGLUTIDE
     Dosage: 2.4 MG, QD
     Route: 058
     Dates: start: 20160307
  2. SAXENDA [Suspect]
     Active Substance: LIRAGLUTIDE
     Dosage: 1.2 MG, QD
     Route: 058
     Dates: start: 201602
  3. SAXENDA [Suspect]
     Active Substance: LIRAGLUTIDE
     Indication: WEIGHT DECREASED
     Dosage: 0.6 MG QD X1WK
     Route: 058
     Dates: start: 20160217

REACTIONS (5)
  - Drug effect decreased [Not Recovered/Not Resolved]
  - Hunger [Not Recovered/Not Resolved]
  - Injection site pain [Unknown]
  - Injection site mass [Unknown]
  - Weight loss poor [Unknown]

NARRATIVE: CASE EVENT DATE: 20160217
